FAERS Safety Report 15811748 (Version 4)
Quarter: 2019Q3

REPORT INFORMATION
  Report Type: Spontaneous
  Country: US (occurrence: US)
  Receive Date: 20190111
  Receipt Date: 20190708
  Transmission Date: 20191004
  Serious: No
  Sender: FDA-Public Use
  Company Number: US-PFIZER INC-2019011837

PATIENT
  Sex: Female

DRUGS (2)
  1. CHANTIX [Suspect]
     Active Substance: VARENICLINE TARTRATE
     Dosage: 1.5 MG, DAILY (0.5 IN AM + 1.0 IN PM)
  2. CHANTIX [Suspect]
     Active Substance: VARENICLINE TARTRATE
     Indication: SMOKING CESSATION THERAPY
     Dosage: 0.5 MG, 2X/DAY, [HALF IN THE MORNING AND HALF IN THE EVENING]

REACTIONS (18)
  - Retching [Unknown]
  - Abnormal dreams [Unknown]
  - Dry mouth [Unknown]
  - Abdominal discomfort [Unknown]
  - Vomiting [Unknown]
  - Somnolence [Unknown]
  - Flatulence [Unknown]
  - Malaise [Recovering/Resolving]
  - Bone contusion [Unknown]
  - Disturbance in attention [Unknown]
  - Agitation [Recovering/Resolving]
  - Contusion [Unknown]
  - Fall [Unknown]
  - Nausea [Unknown]
  - Headache [Unknown]
  - Depression [Unknown]
  - Intentional product misuse [Unknown]
  - Nightmare [Unknown]
